FAERS Safety Report 9372462 (Version 1)
Quarter: 2013Q2

REPORT INFORMATION
  Report Type: Spontaneous
  Country: US (occurrence: None)
  Receive Date: 20130612
  Receipt Date: 20130612
  Transmission Date: 20140414
  Serious: Yes (Disabling)
  Sender: FDA-Public Use
  Company Number: 003-114

PATIENT
  Age: 55 Year
  Sex: Male

DRUGS (1)
  1. CROFAB [Suspect]
     Indication: SNAKE BITE

REACTIONS (3)
  - Extremity necrosis [None]
  - Joint range of motion decreased [None]
  - Finger amputation [None]
